FAERS Safety Report 6673573-6 (Version None)
Quarter: 2010Q2

REPORT INFORMATION
  Report Type: 
  Country: None (occurrence: None)
  Receive Date: 20100408
  Receipt Date: 20100330
  Transmission Date: 20101027
  Serious: Yes (Death, Hospitalization)
  Sender: FDA-Public Use
  Company Number: DE-PFIZER INC-2008152240

PATIENT
  Age: 72 Year
  Sex: Male
  Weight: 90 kg

DRUGS (10)
  1. BLINDED *NO SUBJECT DRUG [Suspect]
     Indication: NON-SMALL CELL LUNG CANCER
     Dosage: 37.5 MG, 1X/DAY
     Route: 048
     Dates: start: 20080702, end: 20080724
  2. BLINDED *PLACEBO [Suspect]
     Indication: NON-SMALL CELL LUNG CANCER
     Dosage: 37.5 MG, 1X/DAY
     Route: 048
     Dates: start: 20080702, end: 20080724
  3. BLINDED SUNITINIB MALATE [Suspect]
     Indication: NON-SMALL CELL LUNG CANCER
     Dosage: 37.5 MG, 1X/DAY
     Route: 048
     Dates: start: 20080702, end: 20080724
  4. *ERLOTINIB [Suspect]
     Dosage: 150 MG, 1X/DAY
     Route: 048
     Dates: start: 20080702
  5. RAMIPRIL [Concomitant]
     Dosage: UNK
     Route: 048
     Dates: start: 20080101
  6. METOPROLOL [Concomitant]
     Dosage: UNK
     Route: 048
     Dates: start: 20080101
  7. ESOMEPRAZOLE [Concomitant]
     Dosage: UNK
     Route: 048
     Dates: start: 20080101
  8. TORASEMIDE [Concomitant]
     Dosage: UNK
     Route: 048
     Dates: start: 20080723
  9. DIOVAN HCT [Concomitant]
     Dosage: UNK
     Route: 048
     Dates: start: 20080101, end: 20080724
  10. AMLODIPINE [Concomitant]
     Dosage: UNK
     Route: 048
     Dates: start: 20080101

REACTIONS (2)
  - HYPERTENSION [None]
  - RESPIRATORY FAILURE [None]
